FAERS Safety Report 7099045-5 (Version None)
Quarter: 2010Q4

REPORT INFORMATION
  Report Type: 
  Country: None (occurrence: None)
  Receive Date: 20101112
  Receipt Date: 20101101
  Transmission Date: 20110411
  Serious: Yes (Hospitalization, Other)
  Sender: FDA-Public Use
  Company Number: PHHY2010US29627

PATIENT
  Sex: Female
  Weight: 58.05 kg

DRUGS (2)
  1. EXJADE [Suspect]
     Indication: MYELODYSPLASTIC SYNDROME
     Dosage: 1250 MG, DAILY
     Route: 048
     Dates: start: 20100405, end: 20100701
  2. LEVAQUIN [Concomitant]

REACTIONS (8)
  - ANAEMIA [None]
  - CONTUSION [None]
  - DIARRHOEA [None]
  - PLATELET COUNT DECREASED [None]
  - RASH [None]
  - THROMBOSIS [None]
  - TOOTH ABSCESS [None]
  - UPPER RESPIRATORY TRACT INFECTION [None]
